FAERS Safety Report 17850953 (Version 1)
Quarter: 2020Q2

REPORT INFORMATION
  Report Type: Spontaneous
  Country: AU (occurrence: AU)
  Receive Date: 20200602
  Receipt Date: 20200602
  Transmission Date: 20200714
  Serious: Yes (Death)
  Sender: FDA-Public Use
  Company Number: AU-CELGENEUS-AUS-20200508675

PATIENT
  Sex: Male

DRUGS (3)
  1. ROMIDEPSIN. [Suspect]
     Active Substance: ROMIDEPSIN
     Indication: T-CELL LYMPHOMA
     Dosage: DOSE NOT PROVIDED
     Route: 041
  2. CHOP [Concomitant]
     Active Substance: CYCLOPHOSPHAMIDE\DOXORUBICIN\PREDNISONE\VINCRISTINE
     Indication: T-CELL LYMPHOMA
     Dosage: DOSE NOT PROVIDED
     Route: 065
  3. PRALATREXATE [Concomitant]
     Active Substance: PRALATREXATE
     Indication: T-CELL LYMPHOMA
     Dosage: DOSE NOT PROVIDED
     Route: 065

REACTIONS (1)
  - T-cell lymphoma [Fatal]
